FAERS Safety Report 10235706 (Version 1)
Quarter: 2014Q1

REPORT INFORMATION
  Report Type: Spontaneous
  Country: US (occurrence: None)
  Receive Date: 20140306
  Receipt Date: 20140306
  Transmission Date: 20141002
  Serious: Yes (Other)
  Sender: FDA-Public Use
  Company Number: 163-21880-13111249

PATIENT
  Age: 88 Year
  Sex: Male
  Weight: 74.84 kg

DRUGS (3)
  1. REVLIMID (LENALIDOMIDE) (5 MILLIGRAM, CAPSULES) [Suspect]
     Indication: MYELODYSPLASTIC SYNDROME
     Dosage: 5 MG , 1 IN 1 D, PO DEC/2012 - 2013 THERAPY DATES
     Route: 048
     Dates: start: 201212, end: 2013
  2. LISINOPRIL (LISINOPRIL) [Concomitant]
  3. ASPIRIN (ACETYLSALICYLIC ACID) [Concomitant]

REACTIONS (1)
  - Thrombocytopenia [None]
